FAERS Safety Report 8310858-1 (Version None)
Quarter: 2012Q2

REPORT INFORMATION
  Report Type: 
  Country: None (occurrence: None)
  Receive Date: 20120423
  Receipt Date: 20120416
  Transmission Date: 20120825
  Serious: Yes (Hospitalization, Other)
  Sender: FDA-Public Use
  Company Number: DKLU1077479

PATIENT
  Age: 15 Year
  Sex: Male

DRUGS (11)
  1. LAMICTAL [Concomitant]
  2. ONFI [Suspect]
     Indication: PARTIAL SEIZURES
  3. ONFI [Suspect]
     Indication: EPILEPSY
  4. ONFI [Suspect]
     Indication: PARTIAL SEIZURES
     Dates: start: 20120201
  5. ONFI [Suspect]
     Indication: EPILEPSY
     Dates: start: 20120201
  6. BACITRACIN [Concomitant]
  7. THROMBIN NOS [Concomitant]
  8. AVITENE [Concomitant]
  9. MARCAINE HYDROCHLORIDE W/ EPINEPHRINE [Concomitant]
  10. VIMPACT (LACOSAMIDE) [Concomitant]
  11. DEPAKOTE [Concomitant]

REACTIONS (6)
  - DRUG WITHDRAWAL CONVULSIONS [None]
  - PARTIAL SEIZURES [None]
  - ERYTHEMA MULTIFORME [None]
  - IRRITABILITY [None]
  - STEVENS-JOHNSON SYNDROME [None]
  - ABNORMAL BEHAVIOUR [None]
